FAERS Safety Report 9642265 (Version 1)
Quarter: 2013Q4

REPORT INFORMATION
  Report Type: Not Available
  Country: US (occurrence: US)
  Receive Date: 20131024
  Receipt Date: 20131024
  Transmission Date: 20140711
  Serious: Yes (Other)
  Sender: FDA-Public Use
  Company Number: US-LUPIN PHARMACEUTICALS INC.-E2B_00001367

PATIENT
  Age: 39 Year
  Sex: Female
  Weight: 74.91 kg

DRUGS (1)
  1. LISINOPRIL TABLETS USP 10 MG [Suspect]
     Indication: BLOOD PRESSURE ABNORMAL

REACTIONS (1)
  - Coeliac disease [Not Recovered/Not Resolved]
